FAERS Safety Report 4575880-X (Version None)
Quarter: 2005Q1

REPORT INFORMATION
  Report Type: 
  Country: None (occurrence: None)
  Receive Date: 20050201
  Receipt Date: 20050201
  Transmission Date: 20050727
  Serious: No
  Sender: FDA-Public Use
  Company Number: None

PATIENT
  Age: 76 Year
  Sex: Female

DRUGS (9)
  1. ISOSORBIDE MONONITRATE [Suspect]
     Indication: ANGINA PECTORIS
     Dosage: ONE BY MOUTH TWICE DAILY
     Route: 048
     Dates: start: 19900101
  2. MAVIK [Concomitant]
  3. METOLAZONE [Concomitant]
  4. AMBIEN [Concomitant]
  5. PREVACID [Concomitant]
  6. POTASSIUM CHLORIDE [Concomitant]
  7. COLCHICINE [Concomitant]
  8. ALLOPURINOL [Concomitant]
  9. LASIX [Concomitant]

REACTIONS (2)
  - CHEST PAIN [None]
  - PHARMACEUTICAL PRODUCT COMPLAINT [None]
